FAERS Safety Report 6963888-6 (Version None)
Quarter: 2010Q3

REPORT INFORMATION
  Report Type: 
  Country: None (occurrence: None)
  Receive Date: 20100831
  Receipt Date: 20100817
  Transmission Date: 20110219
  Serious: Yes (Death)
  Sender: FDA-Public Use
  Company Number: AUR-APL-2010-02063

PATIENT
  Age: 66 Year
  Sex: Female

DRUGS (8)
  1. CEFTAZIDIME [Suspect]
     Indication: BRONCHIECTASIS
     Dosage: 2G, IV
     Route: 042
  2. ALVERINE [Concomitant]
  3. FUROSEMIDE [Concomitant]
  4. IPRATROPIUM BROMIDE [Concomitant]
  5. LISINOPRIL [Concomitant]
  6. OMEPRAZOLE [Concomitant]
  7. PROCHLORPERAZINE [Concomitant]
  8. SALBUTAMOL INHALATION [Concomitant]

REACTIONS (2)
  - ANAPHYLACTIC REACTION [None]
  - NO THERAPEUTIC RESPONSE [None]
